FAERS Safety Report 4437603-4 (Version None)
Quarter: 2004Q3

REPORT INFORMATION
  Report Type: 
  Country: None (occurrence: None)
  Receive Date: 20040830
  Receipt Date: 20040830
  Transmission Date: 20050211
  Serious: Yes (Hospitalization)
  Sender: FDA-Public Use
  Company Number: None

PATIENT
  Age: 55 Year
  Sex: Male

DRUGS (3)
  1. TYLENOL [Suspect]
  2. SOMA [Suspect]
  3. DILAUDID [Concomitant]

REACTIONS (5)
  - BRADYCARDIA [None]
  - INTENTIONAL OVERDOSE [None]
  - LETHARGY [None]
  - MEDICATION ERROR [None]
  - POSTURE ABNORMAL [None]
